FAERS Safety Report 9723022 (Version 1)
Quarter: 2013Q4

REPORT INFORMATION
  Report Type: Spontaneous
  Country: US (occurrence: US)
  Receive Date: 20131202
  Receipt Date: 20131202
  Transmission Date: 20140711
  Serious: Yes (Death, Congenital Anomaly, Other)
  Sender: FDA-Public Use
  Company Number: US-ELI_LILLY_AND_COMPANY-US201311007586

PATIENT
  Sex: 0

DRUGS (1)
  1. PROZAC [Suspect]
     Indication: PRODUCT USED FOR UNKNOWN INDICATION
     Dosage: 1 DF, UNK
     Route: 064

REACTIONS (5)
  - Death [Fatal]
  - Coarctation of the aorta [Unknown]
  - Hypoplastic left heart syndrome [Unknown]
  - Pulmonary artery stenosis congenital [Unknown]
  - Foetal exposure during pregnancy [Unknown]
